FAERS Safety Report 10130353 (Version 1)
Quarter: 2014Q2

REPORT INFORMATION
  Report Type: Report from Study
  Country: BE (occurrence: BE)
  Receive Date: 20140428
  Receipt Date: 20140428
  Transmission Date: 20141212
  Serious: Yes (Hospitalization)
  Sender: FDA-Public Use
  Company Number: BE-ASTELLAS-2014EU004173

PATIENT
  Age: 70 Year
  Sex: Male
  Weight: 100 kg

DRUGS (5)
  1. TACROLIMUS [Suspect]
     Indication: PROPHYLAXIS AGAINST TRANSPLANT REJECTION
     Route: 048
     Dates: start: 20070528
  2. NOVONORM [Concomitant]
     Indication: PRODUCT USED FOR UNKNOWN INDICATION
     Route: 048
  3. METFORMAX [Concomitant]
     Indication: DIABETES MELLITUS
     Route: 048
  4. PANTOMED                           /01263204/ [Concomitant]
     Indication: GASTRITIS PROPHYLAXIS
     Route: 048
  5. SIPRALEXA [Concomitant]
     Indication: DEPRESSION
     Route: 048

REACTIONS (2)
  - Peritonitis [Recovered/Resolved]
  - Alcohol abuse [Recovered/Resolved]
